FAERS Safety Report 7530694-3 (Version None)
Quarter: 2011Q2

REPORT INFORMATION
  Report Type: 
  Country: None (occurrence: None)
  Receive Date: 20110607
  Receipt Date: 20110523
  Transmission Date: 20111010
  Serious: Yes (Other)
  Sender: FDA-Public Use
  Company Number: FR-WATSON-2011-07353

PATIENT

DRUGS (5)
  1. PEGINTERFERON ALFA-2A [Suspect]
     Indication: HEPATITIS C VIRUS TEST POSITIVE
     Dosage: UNK
  2. RIBAVIRIN [Suspect]
     Indication: HEPATITIS C VIRUS TEST POSITIVE
     Dosage: UNK
     Dates: start: 20000101
  3. CYCLOSPORINE [Suspect]
     Indication: IMMUNOSUPPRESSION
     Dosage: UNK
  4. MYCOPHENOLATE MEFETIL [Suspect]
     Indication: IMMUNOSUPPRESSANT DRUG THERAPY
     Dosage: UNK
  5. TACROLIMUS [Suspect]
     Indication: IMMUNOSUPPRESSION
     Dosage: UNK

REACTIONS (10)
  - ANAEMIA [None]
  - TRANSPLANT REJECTION [None]
  - SEPSIS [None]
  - HEPATIC FAILURE [None]
  - RENAL FAILURE [None]
  - LEUKOENCEPHALOPATHY [None]
  - HEPATITIS C [None]
  - NEPHROPATHY TOXIC [None]
  - CONVULSION [None]
  - VENOOCCLUSIVE DISEASE [None]
